FAERS Safety Report 15369382 (Version 4)
Quarter: 2018Q4

REPORT INFORMATION
  Report Type: Report from Study
  Country: CA (occurrence: CA)
  Receive Date: 20180911
  Receipt Date: 20181204
  Transmission Date: 20190204
  Serious: Yes (Hospitalization, Other)
  Sender: FDA-Public Use
  Company Number: CA-ROCHE-2136029

PATIENT
  Age: 55 Year
  Sex: Female

DRUGS (7)
  1. OCREVUS [Suspect]
     Active Substance: OCRELIZUMAB
     Route: 042
  2. RIVOTRIL [Concomitant]
     Active Substance: CLONAZEPAM
     Dosage: AT NIGHT AND 0.25 MG IN THE MORNING
     Route: 065
     Dates: start: 201707
  3. NABILONE [Concomitant]
     Active Substance: NABILONE
     Route: 065
     Dates: start: 201707
  4. SOLU-MEDROL [Suspect]
     Active Substance: METHYLPREDNISOLONE SODIUM SUCCINATE
     Indication: MULTIPLE SCLEROSIS
     Dosage: REACTION: FEELING MORE IMPATIENT, HAS A CHANGING MOOD, CRIES WITHOUT REASON
     Route: 042
     Dates: start: 20180604
  5. OCREVUS [Suspect]
     Active Substance: OCRELIZUMAB
     Indication: RELAPSING-REMITTING MULTIPLE SCLEROSIS
     Route: 042
     Dates: start: 20180604
  6. SOLU-MEDROL [Suspect]
     Active Substance: METHYLPREDNISOLONE SODIUM SUCCINATE
     Dosage: REACTION: FEELING MORE IMPATIENT, HAS A CHANGING MOOD, CRIES WITHOUT REASON
     Route: 042
  7. LYRICA [Concomitant]
     Active Substance: PREGABALIN
     Indication: PAIN
     Route: 065
     Dates: start: 201707

REACTIONS (19)
  - Mood altered [Not Recovered/Not Resolved]
  - Limb discomfort [Recovered/Resolved]
  - Neuralgia [Recovering/Resolving]
  - Pain in extremity [Recovered/Resolved]
  - Pain [Unknown]
  - Myelitis [Unknown]
  - Oropharyngeal pain [Recovered/Resolved]
  - Hypoaesthesia [Unknown]
  - Mental disorder [Recovering/Resolving]
  - Peripheral swelling [Recovered/Resolved]
  - Nausea [Recovered/Resolved]
  - Crying [Recovered/Resolved]
  - Burning sensation [Recovering/Resolving]
  - Intracranial pressure increased [Unknown]
  - Fatigue [Recovered/Resolved]
  - Infusion related reaction [Recovered/Resolved]
  - Impatience [Not Recovered/Not Resolved]
  - Irritability [Recovered/Resolved]
  - Paraesthesia [Recovering/Resolving]

NARRATIVE: CASE EVENT DATE: 20180604
